FAERS Safety Report 8063030-7 (Version None)
Quarter: 2012Q1

REPORT INFORMATION
  Report Type: 
  Country: None (occurrence: None)
  Receive Date: 20120117
  Receipt Date: 20120102
  Transmission Date: 20120608
  Serious: Yes (Other)
  Sender: FDA-Public Use
  Company Number: 2012MA000102

PATIENT
  Sex: Female

DRUGS (17)
  1. CALCIUM AND VITAMIN D [Concomitant]
  2. METHOTREXATE [Concomitant]
  3. VITAMIN D [Concomitant]
  4. DIGOXIN [Suspect]
     Dosage: 0.125 MG;
     Dates: start: 20040331, end: 20080421
  5. FOLIC ACID [Concomitant]
  6. HYDROCHLOROTHIAZIDE [Concomitant]
  7. LEVAQUIN [Concomitant]
  8. VERSED [Concomitant]
  9. LIPITOR [Concomitant]
  10. SYNTHROID [Concomitant]
  11. CARDIZEM CD [Concomitant]
  12. LORAZEPAM [Concomitant]
  13. WARFARIN SODIUM [Concomitant]
  14. DOXEPIN [Concomitant]
  15. AVAPRO [Concomitant]
  16. FENTANYL [Concomitant]
  17. LOPRESSOR [Concomitant]

REACTIONS (30)
  - COLITIS [None]
  - ACUTE RESPIRATORY DISTRESS SYNDROME [None]
  - CARDIOMEGALY [None]
  - BODY TEMPERATURE DECREASED [None]
  - MITRAL VALVE INCOMPETENCE [None]
  - AORTIC VALVE SCLEROSIS [None]
  - ATRIAL FIBRILLATION [None]
  - HYDRONEPHROSIS [None]
  - NEPHROPATHY [None]
  - TRICUSPID VALVE INCOMPETENCE [None]
  - CEREBRAL ATROPHY [None]
  - DIVERTICULUM [None]
  - UROSEPSIS [None]
  - CAROTID ARTERY STENOSIS [None]
  - AORTIC VALVE INCOMPETENCE [None]
  - RESIDUAL URINE VOLUME INCREASED [None]
  - MUSCULOSKELETAL CHEST PAIN [None]
  - COUGH [None]
  - HAEMORRHOIDS [None]
  - ISCHAEMIA [None]
  - ABDOMINAL PAIN [None]
  - BALANCE DISORDER [None]
  - ASTHENIA [None]
  - DILATATION ATRIAL [None]
  - HYPERTENSION [None]
  - HIATUS HERNIA [None]
  - DYSPNOEA [None]
  - CORONARY ARTERY DISEASE [None]
  - RENAL CYST [None]
  - INFLAMMATION [None]
